FAERS Safety Report 7957941-8 (Version None)
Quarter: 2011Q4

REPORT INFORMATION
  Report Type: 
  Country: None (occurrence: None)
  Receive Date: 20111205
  Receipt Date: 20111128
  Transmission Date: 20120403
  Serious: Yes (Other)
  Sender: FDA-Public Use
  Company Number: US-AMGEN-USASP2011062694

PATIENT
  Age: 55 Year
  Sex: Female

DRUGS (1)
  1. ENBREL [Suspect]
     Indication: ARTHRITIS
     Dosage: 50 MG, QWK
     Dates: start: 20110827, end: 20111120

REACTIONS (8)
  - THROMBOSIS [None]
  - MENISCUS LESION [None]
  - ARTHRITIS [None]
  - LARYNGITIS [None]
  - COUGH [None]
  - BONE DEBRIDEMENT [None]
  - PYREXIA [None]
  - MYALGIA [None]
